FAERS Safety Report 8033433-5 (Version None)
Quarter: 2012Q1

REPORT INFORMATION
  Report Type: 
  Country: None (occurrence: None)
  Receive Date: 20120110
  Receipt Date: 20120102
  Transmission Date: 20120608
  Serious: Yes (Hospitalization, Other)
  Sender: FDA-Public Use
  Company Number: BR-ROCHE-1022137

PATIENT
  Sex: Female

DRUGS (3)
  1. BUDESONIDE [Suspect]
     Indication: ASTHMA
     Dates: start: 20110201
  2. SINGULAIR [Concomitant]
     Indication: PRODUCT USED FOR UNKNOWN INDICATION
  3. XOLAIR [Suspect]
     Indication: ASTHMA
     Dates: start: 20110201

REACTIONS (8)
  - MIGRAINE [None]
  - PAIN IN EXTREMITY [None]
  - PNEUMONIA [None]
  - ASTHMA [None]
  - SINUSITIS [None]
  - HEADACHE [None]
  - TOOTHACHE [None]
  - RESPIRATORY TRACT INFECTION [None]
